FAERS Safety Report 12231702 (Version 1)
Quarter: 2016Q2

REPORT INFORMATION
  Report Type: Spontaneous
  Country: JP (occurrence: JP)
  Receive Date: 20160401
  Receipt Date: 20160401
  Transmission Date: 20160815
  Serious: Yes (Other)
  Sender: FDA-Public Use
  Company Number: JP-EAGLE PHARMACEUTICALS, INC.-JP-2016EAG000021

PATIENT

DRUGS (1)
  1. DOCETAXEL. [Suspect]
     Active Substance: DOCETAXEL
     Indication: ANGIOSARCOMA
     Dosage: 25 MG/M2, PER WEEK FOR 3 WEEKS, FOLLOWED BY 1 WEEK OFF
     Route: 042

REACTIONS (4)
  - Drug ineffective for unapproved indication [Unknown]
  - Diarrhoea [Unknown]
  - Hypovolaemic shock [None]
  - Disease progression [Recovering/Resolving]
